FAERS Safety Report 9037063 (Version 1)
Quarter: 2013Q1

REPORT INFORMATION
  Report Type: Report from Study
  Country: US (occurrence: US)
  Receive Date: 20130129
  Receipt Date: 20130129
  Transmission Date: 20140127
  Serious: No
  Sender: FDA-Public Use
  Company Number: US-ABBOTT-12P-163-0893908-00

PATIENT
  Age: 79 None
  Sex: Female

DRUGS (1)
  1. HUMIRA 40 MG/0.8 ML PEN [Suspect]
     Indication: RHEUMATOID ARTHRITIS
     Route: 058
     Dates: start: 201107

REACTIONS (7)
  - Viral infection [Recovered/Resolved]
  - Oral herpes [Unknown]
  - Erythema [Unknown]
  - Skin exfoliation [Unknown]
  - Ulcer [Unknown]
  - Rash macular [Unknown]
  - Papule [Unknown]
